FAERS Safety Report 24669653 (Version 1)
Quarter: 2024Q4

REPORT INFORMATION
  Report Type: Spontaneous
  Country: US (occurrence: None)
  Receive Date: 20241123
  Receipt Date: 20241123
  Transmission Date: 20250114
  Serious: No
  Sender: Public
  Company Number: None

PATIENT
  Age: 33 Year
  Sex: Female
  Weight: 60.33 kg

DRUGS (1)
  1. QELBREE [Suspect]
     Active Substance: VILOXAZINE HYDROCHLORIDE
     Dosage: 200 MG DAILY ORAL ?
     Route: 048
     Dates: start: 20241118

REACTIONS (3)
  - Headache [None]
  - Mania [None]
  - Abnormal behaviour [None]

NARRATIVE: CASE EVENT DATE: 20241120
